FAERS Safety Report 7055645-X (Version None)
Quarter: 2010Q4

REPORT INFORMATION
  Report Type: 
  Country: None (occurrence: None)
  Receive Date: 20101020
  Receipt Date: 20101020
  Transmission Date: 20110411
  Serious: Yes (Other)
  Sender: FDA-Public Use
  Company Number: None

PATIENT

DRUGS (2)
  1. VALACYCLOVIR HYDROCHLORIDE [Suspect]
     Indication: HERPES ZOSTER
     Dosage: 500 MG
     Dates: start: 20100601, end: 20100922
  2. VALTREX [Suspect]
     Indication: HERPES ZOSTER
     Dosage: 500 MG

REACTIONS (3)
  - DRUG EFFECT DECREASED [None]
  - HERPES ZOSTER [None]
  - PRODUCT SUBSTITUTION ISSUE [None]
